FAERS Safety Report 8264742-2 (Version None)
Quarter: 2012Q2

REPORT INFORMATION
  Report Type: 
  Country: None (occurrence: None)
  Receive Date: 20120404
  Receipt Date: 20120326
  Transmission Date: 20120825
  Serious: Yes (Hospitalization)
  Sender: FDA-Public Use
  Company Number: AUR-APL-2012-01510

PATIENT

DRUGS (5)
  1. METAGLIP [Suspect]
     Indication: DIABETES MELLITUS
     Dosage: 5/500 MG (2 IN 1 D),
     Dates: start: 20080101, end: 20120229
  2. CELECOXIB;IBUPROFENI/ NAPROXEN;PLACEBO [Suspect]
     Indication: RHEUMATOID ARTHRITIS
     Dosage: (3 IN 1 D),ORAL
     Route: 048
     Dates: start: 20110825, end: 20120229
  3. NEXIUM [Concomitant]
  4. LISINOPRIL [Suspect]
     Indication: HYPERTENSION
     Dosage: 10 MG (10 MG, 1 IN 1 D),ORAL
     Route: 048
     Dates: start: 20111128, end: 20120229
  5. MAXZIDE [Suspect]
     Indication: HYPERTENSION
     Dosage: 75/50 MG (1 IN 1 D) ,ORAL
     Route: 048
     Dates: start: 20080101, end: 20120229

REACTIONS (1)
  - RENAL FAILURE ACUTE [None]
